FAERS Safety Report 7933318-6 (Version None)
Quarter: 2011Q4

REPORT INFORMATION
  Report Type: 
  Country: None (occurrence: None)
  Receive Date: 20111122
  Receipt Date: 20111115
  Transmission Date: 20120403
  Serious: Yes (Hospitalization, Other)
  Sender: FDA-Public Use
  Company Number: US-SANOFI-AVENTIS-2011SA071362

PATIENT
  Age: 61 Year
  Sex: Female
  Weight: 59.8 kg

DRUGS (21)
  1. OMEPRAZOLE [Concomitant]
  2. ALL OTHER THERAPEUTIC PRODUCTS [Concomitant]
  3. TRICOR [Concomitant]
  4. GLIMEPIRIDE [Concomitant]
  5. DIGOXIN [Concomitant]
  6. LOVENOX [Suspect]
     Indication: THROMBOSIS
     Route: 058
     Dates: start: 20110824, end: 20110917
  7. PROPRANOLOL [Concomitant]
     Indication: BLOOD PRESSURE
  8. COUMADIN [Concomitant]
  9. PROCARDIA [Suspect]
     Dates: end: 20110917
  10. LOVENOX [Suspect]
     Indication: THROMBOSIS PROPHYLAXIS
     Route: 058
     Dates: start: 20110824, end: 20110917
  11. VICODIN [Concomitant]
  12. LISINOPRIL [Concomitant]
  13. ASPIRIN [Concomitant]
     Indication: THROMBOSIS PROPHYLAXIS
  14. CALCIUM [Concomitant]
  15. LIPITOR [Concomitant]
  16. LORAZEPAM [Concomitant]
     Indication: ANXIETY
  17. PROCHLORPERAZINE [Concomitant]
  18. FOLIC ACID [Concomitant]
  19. PREDNISONE TAB [Concomitant]
     Indication: ARTHRITIS
  20. CREON [Concomitant]
     Dates: end: 20110917
  21. LASIX [Concomitant]
     Indication: SWELLING
     Dates: end: 20110917

REACTIONS (8)
  - DIZZINESS [None]
  - MALAISE [None]
  - RECTAL HAEMORRHAGE [None]
  - HYPOTENSION [None]
  - FALL [None]
  - DIARRHOEA [None]
  - LACERATION [None]
  - INJECTION SITE HAEMATOMA [None]
